FAERS Safety Report 6839081-4 (Version None)
Quarter: 2010Q3

REPORT INFORMATION
  Report Type: 
  Country: None (occurrence: None)
  Receive Date: 20100714
  Receipt Date: 20100707
  Transmission Date: 20110219
  Serious: Yes (Hospitalization)
  Sender: FDA-Public Use
  Company Number: 2005BI014931

PATIENT
  Age: 46 Year
  Sex: Female
  Weight: 97 kg

DRUGS (18)
  1. AVONEX [Suspect]
     Indication: MULTIPLE SCLEROSIS
     Route: 030
     Dates: start: 20050328, end: 20050418
  2. AVONEX [Suspect]
     Route: 030
     Dates: start: 20050516, end: 20050101
  3. AVONEX [Suspect]
     Route: 030
     Dates: start: 20050101, end: 20050101
  4. AVONEX [Suspect]
     Route: 030
     Dates: start: 20050101, end: 20050721
  5. AVONEX [Suspect]
     Route: 030
     Dates: start: 20050728, end: 20050801
  6. LOTENSIN [Concomitant]
     Indication: BLOOD PRESSURE INCREASED
     Dates: start: 20020101
  7. VASOTEC [Concomitant]
     Indication: BLOOD PRESSURE INCREASED
     Dates: end: 20050806
  8. ESTRADIOL [Concomitant]
     Indication: HYSTERECTOMY
     Dates: start: 20050101, end: 20050301
  9. MOTRIN [Concomitant]
     Indication: PROPHYLAXIS
  10. MULTI-VITAMIN [Concomitant]
     Indication: PRODUCT USED FOR UNKNOWN INDICATION
  11. VITAMIN C [Concomitant]
     Indication: PRODUCT USED FOR UNKNOWN INDICATION
  12. FLAXSEED OIL [Concomitant]
     Indication: PRODUCT USED FOR UNKNOWN INDICATION
  13. LYSINE [Concomitant]
     Indication: PRODUCT USED FOR UNKNOWN INDICATION
  14. CRANBERRY [Concomitant]
     Indication: PRODUCT USED FOR UNKNOWN INDICATION
  15. CALCIUM WITH VITAMIN D [Concomitant]
     Indication: PRODUCT USED FOR UNKNOWN INDICATION
  16. VITAMIN B [Concomitant]
     Indication: PRODUCT USED FOR UNKNOWN INDICATION
  17. ALPRAZOLAM [Concomitant]
     Indication: PRODUCT USED FOR UNKNOWN INDICATION
     Dates: start: 20050806
  18. MSM [Concomitant]
     Indication: PRODUCT USED FOR UNKNOWN INDICATION

REACTIONS (9)
  - ABDOMINAL DISTENSION [None]
  - ABNORMAL DREAMS [None]
  - ARTERITIS [None]
  - BREAST TENDERNESS [None]
  - CORONARY ARTERY OCCLUSION [None]
  - DEPRESSION [None]
  - EYE IRRITATION [None]
  - MYOCARDIAL INFARCTION [None]
  - SCAR [None]
